FAERS Safety Report 5027164-3 (Version None)
Quarter: 2006Q2

REPORT INFORMATION
  Report Type: 
  Country: None (occurrence: None)
  Receive Date: 20060612
  Receipt Date: 20060601
  Transmission Date: 20061013
  Serious: Yes (Hospitalization)
  Sender: FDA-Public Use
  Company Number: 225825

PATIENT
  Age: 39 Year
  Sex: Male
  Weight: 110 kg

DRUGS (2)
  1. BEVACIZUMAB(BEVACIZUMAB) PWDR + SOLVENT,INFUSION SOLN, 100MG [Suspect]
     Indication: OESOPHAGEAL CARCINOMA
     Dosage: 5 MG/KG, DAYS 1 + 15, INTRAVENOUS
     Route: 042
     Dates: start: 20060508
  2. DOCETAXEL(DOCETAXEL) [Suspect]
     Indication: OESOPHAGEAL CARCINOMA
     Dosage: 35 MG/M2, DAYS1,8,15, INTRAVENOUS
     Route: 042
     Dates: start: 20060508

REACTIONS (4)
  - ABDOMINAL PAIN [None]
  - DEHYDRATION [None]
  - DYSPHAGIA [None]
  - VOMITING [None]
